FAERS Safety Report 25401117 (Version 1)
Quarter: 2025Q2

REPORT INFORMATION
  Report Type: Other
  Country: GB (occurrence: GB)
  Receive Date: 20250605
  Receipt Date: 20250605
  Transmission Date: 20250716
  Serious: Yes (Other)
  Sender: GLENMARK
  Company Number: None

PATIENT
  Sex: Male

DRUGS (1)
  1. DAPAGLIFLOZIN [Suspect]
     Active Substance: DAPAGLIFLOZIN
     Indication: Product used for unknown indication
     Route: 065

REACTIONS (4)
  - Deafness bilateral [Not Recovered/Not Resolved]
  - Tinnitus [Unknown]
  - Excessive cerumen production [Unknown]
  - Dizziness [Unknown]

NARRATIVE: CASE EVENT DATE: 20250407
